FAERS Safety Report 17580863 (Version 1)
Quarter: 2020Q1

REPORT INFORMATION
  Report Type: Spontaneous
  Country: ES (occurrence: ES)
  Receive Date: 20200325
  Receipt Date: 20200325
  Transmission Date: 20200409
  Serious: Yes (Other)
  Sender: FDA-Public Use
  Company Number: ES-MYLANLABS-2020M1030395

PATIENT
  Age: 69 Year
  Sex: Male

DRUGS (5)
  1. ACETYLCYSTEINE. [Suspect]
     Active Substance: ACETYLCYSTEINE
     Indication: RHINORRHOEA
     Dosage: 200 MILLIGRAM, Q8H
     Route: 048
     Dates: start: 20200123, end: 20200124
  2. CEFTRIAXONA                        /00672201/ [Suspect]
     Active Substance: CEFTRIAXONE
     Indication: RESPIRATORY TRACT INFECTION
     Dosage: 2 GRAM, QD
     Route: 042
     Dates: start: 20200121, end: 20200124
  3. ALOPURINOL [Concomitant]
     Active Substance: ALLOPURINOL
     Indication: CHRONIC KIDNEY DISEASE
     Dosage: 300 MILLIGRAM, QD
     Route: 048
     Dates: start: 20200120
  4. OMEPRAZOL                          /00661201/ [Concomitant]
     Active Substance: OMEPRAZOLE
     Indication: PROPHYLAXIS
     Dosage: UNK
     Route: 065
     Dates: start: 20200121
  5. DARBEPOETINA ALFA [Concomitant]
     Indication: ANAEMIA
     Dosage: 80 MICROGRAM, Q3MONTHS
     Route: 058
     Dates: start: 20200121, end: 20200121

REACTIONS (2)
  - Erythema [Recovered/Resolved]
  - Eosinophilia [Recovering/Resolving]

NARRATIVE: CASE EVENT DATE: 20200124
